FAERS Safety Report 6596557-5 (Version None)
Quarter: 2010Q1

REPORT INFORMATION
  Report Type: 
  Country: None (occurrence: None)
  Receive Date: 20100223
  Receipt Date: 20100215
  Transmission Date: 20100710
  Serious: Yes (Death, Life-Threatening, Hospitalization)
  Sender: FDA-Public Use
  Company Number: BE-ABBOTT-05P-013-0301876-01

PATIENT
  Sex: Female
  Weight: 70 kg

DRUGS (21)
  1. HUMIRA [Suspect]
     Indication: RHEUMATOID ARTHRITIS
     Route: 058
     Dates: start: 20041008, end: 20050406
  2. MOTILIUM [Concomitant]
     Indication: DRUG USE FOR UNKNOWN INDICATION
  3. PROLOPA [Concomitant]
     Indication: DRUG USE FOR UNKNOWN INDICATION
  4. OCUGEL [Concomitant]
     Indication: DRUG USE FOR UNKNOWN INDICATION
     Dates: start: 20050412
  5. NITRODERM [Concomitant]
     Indication: ANGINA PECTORIS
     Dates: start: 20050412, end: 20050424
  6. AMLOR [Concomitant]
     Indication: HYPERTENSION
     Dates: start: 20050412, end: 20050424
  7. MIACALCIN [Concomitant]
     Indication: DRUG USE FOR UNKNOWN INDICATION
  8. EFFEXOR XR [Concomitant]
     Indication: DRUG USE FOR UNKNOWN INDICATION
  9. FOLIC ACID [Concomitant]
     Indication: DRUG USE FOR UNKNOWN INDICATION
     Dates: start: 20020321
  10. VITAMIN D [Concomitant]
     Indication: DRUG USE FOR UNKNOWN INDICATION
     Dates: start: 20050412
  11. ZANTAC [Concomitant]
     Indication: DRUG USE FOR UNKNOWN INDICATION
     Dates: start: 20050101
  12. NEPRESOL [Concomitant]
     Indication: DRUG USE FOR UNKNOWN INDICATION
  13. HYDROCORTISONE [Concomitant]
     Indication: DRUG USE FOR UNKNOWN INDICATION
  14. ISOBETADINE [Concomitant]
     Indication: DRUG USE FOR UNKNOWN INDICATION
  15. MEPITEL [Concomitant]
     Indication: DRUG USE FOR UNKNOWN INDICATION
  16. HUMIRA [Concomitant]
     Indication: RHEUMATOID ARTHRITIS
     Route: 058
     Dates: start: 20040901
  17. METHOTREXATE [Concomitant]
     Indication: RHEUMATOID ARTHRITIS
     Dates: start: 20020321
  18. FRAXIPARINE [Concomitant]
     Indication: THROMBOSIS PROPHYLAXIS
     Dates: end: 20050424
  19. ZESTRIL [Concomitant]
     Indication: HYPERTENSION
     Dates: start: 20050406, end: 20050424
  20. IMOVANE [Concomitant]
     Indication: SEDATIVE THERAPY
     Dates: start: 20050406, end: 20050424
  21. SELO-ZOK [Concomitant]
     Indication: HYPERTENSION
     Dates: start: 20050406, end: 20050424

REACTIONS (4)
  - CHOLECYSTITIS [None]
  - DECREASED APPETITE [None]
  - RENAL FAILURE ACUTE [None]
  - SPINAL FRACTURE [None]
